FAERS Safety Report 13096312 (Version 4)
Quarter: 2017Q2

REPORT INFORMATION
  Report Type: Spontaneous
  Country: US (occurrence: US)
  Receive Date: 20170109
  Receipt Date: 20170425
  Transmission Date: 20170830
  Serious: Yes (Hospitalization, Other)
  Sender: FDA-Public Use
  Company Number: US-JNJFOC-20161224011

PATIENT
  Sex: Male

DRUGS (1)
  1. IMBRUVICA [Suspect]
     Active Substance: IBRUTINIB
     Indication: CHRONIC LYMPHOCYTIC LEUKAEMIA
     Route: 065

REACTIONS (13)
  - Atrial fibrillation [Recovering/Resolving]
  - Hypotension [Recovered/Resolved]
  - Nausea [Recovered/Resolved]
  - Pancytopenia [Recovering/Resolving]
  - Atrial flutter [Recovering/Resolving]
  - Asthenia [Unknown]
  - Febrile neutropenia [Recovered/Resolved]
  - Vomiting [Recovered/Resolved]
  - Tachycardia [Unknown]
  - Dizziness [Unknown]
  - Hypophagia [Unknown]
  - Pyrexia [Recovered/Resolved]
  - Neoplasm [Unknown]

NARRATIVE: CASE EVENT DATE: 20160913
